FAERS Safety Report 9110092 (Version 1)
Quarter: 2013Q1

REPORT INFORMATION
  Report Type: Spontaneous
  Country: FR (occurrence: FR)
  Receive Date: 20130222
  Receipt Date: 20130222
  Transmission Date: 20140127
  Serious: Yes (Other)
  Sender: FDA-Public Use
  Company Number: FR-JNJFOC-20130209265

PATIENT
  Sex: Female
  Weight: 70 kg

DRUGS (16)
  1. XARELTO [Suspect]
     Indication: THROMBOPHLEBITIS SUPERFICIAL
     Route: 048
     Dates: start: 20130204
  2. XARELTO [Suspect]
     Indication: THROMBOPHLEBITIS SUPERFICIAL
     Route: 048
     Dates: start: 20121229
  3. XARELTO [Suspect]
     Indication: CEREBROVASCULAR ACCIDENT PROPHYLAXIS
     Route: 048
     Dates: start: 20130204
  4. XARELTO [Suspect]
     Indication: CEREBROVASCULAR ACCIDENT PROPHYLAXIS
     Route: 048
     Dates: start: 20121229
  5. XARELTO [Suspect]
     Indication: ATRIAL FIBRILLATION
     Route: 048
     Dates: start: 20130204
  6. XARELTO [Suspect]
     Indication: ATRIAL FIBRILLATION
     Route: 048
     Dates: start: 20121229
  7. KARDEGIC [Concomitant]
     Route: 065
  8. INEXIUM [Concomitant]
     Route: 065
  9. CARDENSIEL [Concomitant]
     Route: 065
  10. COVERAM [Concomitant]
     Route: 065
  11. TAHOR [Concomitant]
     Route: 065
  12. CORDARONE [Concomitant]
     Route: 065
  13. LASILIX [Concomitant]
     Route: 065
  14. DIFFU K [Concomitant]
     Route: 065
  15. DIAMICRON [Concomitant]
     Route: 065
  16. SPECIAFOLDINE [Concomitant]
     Route: 065

REACTIONS (2)
  - Thrombophlebitis superficial [Unknown]
  - Intentional drug misuse [Unknown]
